FAERS Safety Report 9681318 (Version 1)
Quarter: 2013Q4

REPORT INFORMATION
  Report Type: Spontaneous
  Country: US (occurrence: None)
  Receive Date: 20131108
  Receipt Date: 20131108
  Transmission Date: 20140711
  Serious: Yes (Life-Threatening, Hospitalization)
  Sender: FDA-Public Use
  Company Number: None

PATIENT
  Age: 66 Year
  Sex: Male
  Weight: 192.33 kg

DRUGS (1)
  1. RANEXA [Suspect]
     Route: 048
     Dates: start: 20130923, end: 20131027

REACTIONS (4)
  - Dizziness [None]
  - Paraesthesia [None]
  - Feeling hot [None]
  - Tachycardia [None]
